FAERS Safety Report 21895096 (Version 1)
Quarter: 2023Q1

REPORT INFORMATION
  Report Type: Report from Study
  Country: US (occurrence: US)
  Receive Date: 20230122
  Receipt Date: 20230122
  Transmission Date: 20230418
  Serious: Yes (Life-Threatening, Hospitalization, Other)
  Sender: FDA-Public Use
  Company Number: US-MALLINCKRODT-T202300035

PATIENT
  Age: 0 Year
  Sex: Male
  Weight: 6 kg

DRUGS (1)
  1. CORTICOTROPIN [Suspect]
     Active Substance: CORTICOTROPIN
     Indication: Infantile spasms
     Dosage: 0.3 MILLILITER, BID
     Route: 030
     Dates: start: 20221229

REACTIONS (7)
  - Infantile apnoea [Recovering/Resolving]
  - Bronchial secretion retention [Unknown]
  - Viral infection [Unknown]
  - Left ventricle outflow tract obstruction [Unknown]
  - Left ventricular hypertrophy [Unknown]
  - Oxygen saturation decreased [Unknown]
  - Insomnia [Not Recovered/Not Resolved]

NARRATIVE: CASE EVENT DATE: 20221201
